FAERS Safety Report 11691550 (Version 2)
Quarter: 2016Q2

REPORT INFORMATION
  Report Type: Report from Study
  Country: AT (occurrence: AT)
  Receive Date: 20151102
  Receipt Date: 20160408
  Transmission Date: 20160815
  Serious: Yes (Hospitalization)
  Sender: FDA-Public Use
  Company Number: AT-ABBVIE-15K-009-1379772-00

PATIENT
  Age: 53 Year
  Sex: Female

DRUGS (1)
  1. HUMIRA [Suspect]
     Active Substance: ADALIMUMAB
     Indication: CROHN^S DISEASE
     Route: 058
     Dates: start: 20140905, end: 201602

REACTIONS (12)
  - Constipation [Recovering/Resolving]
  - Weight decreased [Unknown]
  - Abdominal pain [Not Recovered/Not Resolved]
  - Vomiting [Unknown]
  - Rectal polyp [Recovered/Resolved]
  - Fatigue [Recovering/Resolving]
  - Cardiovascular disorder [Unknown]
  - Intestinal stenosis [Unknown]
  - Abdominal pain lower [Recovering/Resolving]
  - Chills [Unknown]
  - Crohn^s disease [Recovered/Resolved]
  - Nausea [Unknown]

NARRATIVE: CASE EVENT DATE: 201504
